FAERS Safety Report 11426319 (Version 1)
Quarter: 2015Q3

REPORT INFORMATION
  Report Type: Spontaneous
  Country: US (occurrence: US)
  Receive Date: 20150821
  Receipt Date: 20150821
  Transmission Date: 20151125
  Serious: No
  Sender: FDA-Public Use
  Company Number: US-ELI_LILLY_AND_COMPANY-US201305006715

PATIENT
  Sex: Female
  Weight: 70.3 kg

DRUGS (2)
  1. HUMULIN R [Suspect]
     Active Substance: INSULIN HUMAN
     Dosage: 6 U, BID
     Route: 058
  2. HUMULIN R [Suspect]
     Active Substance: INSULIN HUMAN
     Dosage: 8 U, EACH EVENING
     Route: 058

REACTIONS (6)
  - Throat irritation [Unknown]
  - Bronchitis [Unknown]
  - Pharyngitis [Unknown]
  - Emotional disorder [Unknown]
  - Wrong technique in product usage process [Not Recovered/Not Resolved]
  - Blood glucose increased [Unknown]
